FAERS Safety Report 6800954-X (Version None)
Quarter: 2010Q2

REPORT INFORMATION
  Report Type: 
  Country: None (occurrence: None)
  Receive Date: 20100629
  Receipt Date: 20100623
  Transmission Date: 20101027
  Serious: Yes (Death, Other)
  Sender: FDA-Public Use
  Company Number: PHHY2010EC41836

PATIENT
  Age: 82 Year
  Sex: Female

DRUGS (2)
  1. DIOVAN [Suspect]
     Indication: HYPERTENSION
     Dosage: 80 MG
     Route: 048
  2. DIOVAN [Suspect]
     Dosage: 160 MG
     Route: 048
     Dates: end: 20100324

REACTIONS (4)
  - ASTHENIA [None]
  - DEPRESSION [None]
  - PULMONARY OEDEMA [None]
  - RESPIRATORY FAILURE [None]
